FAERS Safety Report 8897247 (Version 1)
Quarter: 2012Q4

REPORT INFORMATION
  Report Type: 
  Country: US (occurrence: US)
  Receive Date: 20121108
  Receipt Date: 20121108
  Transmission Date: 20130627
  Serious: No
  Sender: FDA-Public Use
  Company Number: US-AMGEN-USASP2012026193

PATIENT
  Age: 62 Year
  Sex: Female

DRUGS (9)
  1. ENBREL [Suspect]
     Indication: RHEUMATOID ARTHRITIS
     Dosage: 50 mg, qwk
     Dates: start: 201204
  2. CYMBALTA [Concomitant]
  3. PRAVACHOL [Concomitant]
  4. HYDROCHLOROTHIAZIDE [Concomitant]
  5. VALTREX [Concomitant]
  6. PRILOSEC                           /00661201/ [Concomitant]
  7. POTASSIUM [Concomitant]
  8. VITAMIN D /00107901/ [Concomitant]
  9. VITAMIN E                          /00110501/ [Concomitant]

REACTIONS (2)
  - Nausea [Not Recovered/Not Resolved]
  - Vomiting [Not Recovered/Not Resolved]
